FAERS Safety Report 10425850 (Version 1)
Quarter: 2014Q3

REPORT INFORMATION
  Report Type: Spontaneous
  Country: TW (occurrence: TW)
  Receive Date: 20140903
  Receipt Date: 20140903
  Transmission Date: 20150326
  Serious: Yes (Hospitalization)
  Sender: FDA-Public Use
  Company Number: TW-B.I. PHARMACEUTICALS,INC./RIDGEFIELD-2014-BI-39572RF

PATIENT
  Age: 67 Year
  Sex: Female

DRUGS (1)
  1. GILOTRIF [Suspect]
     Active Substance: AFATINIB
     Indication: NON-SMALL CELL LUNG CANCER
     Route: 065

REACTIONS (3)
  - Pyrexia [Recovered/Resolved]
  - Pleural effusion [Unknown]
  - Diarrhoea [Unknown]
